FAERS Safety Report 4948437-6 (Version None)
Quarter: 2006Q1

REPORT INFORMATION
  Report Type: 
  Country: None (occurrence: None)
  Receive Date: 20060320
  Receipt Date: 20060316
  Transmission Date: 20060701
  Serious: Yes (Death)
  Sender: FDA-Public Use
  Company Number: US-ABBOTT-06P-163-0328273-01

PATIENT
  Sex: Male
  Weight: 57.7 kg

DRUGS (13)
  1. RITONAVIR SOFT GELATIN CAPSULES [Suspect]
     Indication: HIV INFECTION
     Route: 048
     Dates: start: 20041221, end: 20060203
  2. TMC114 [Concomitant]
     Indication: HIV INFECTION
     Route: 048
     Dates: start: 20050108, end: 20060203
  3. EMTRICITABINE [Concomitant]
     Indication: HIV INFECTION
     Route: 048
     Dates: start: 20041228, end: 20060203
  4. ZIDOVUDINE [Concomitant]
     Indication: HIV INFECTION
     Route: 048
     Dates: start: 20040121, end: 20060203
  5. TRUVADA [Concomitant]
     Indication: HIV INFECTION
     Route: 048
     Dates: start: 20041228, end: 20060203
  6. BACTRIM [Concomitant]
     Indication: PAIN PROPHYLAXIS
     Route: 048
     Dates: start: 20041115, end: 20060203
  7. PREDNISONE [Concomitant]
     Indication: PAIN OF SKIN
     Route: 048
     Dates: end: 20060203
  8. PREDNISONE [Concomitant]
     Indication: ARTHRALGIA
  9. OFLOXACIN [Concomitant]
     Indication: SKIN LESION
     Route: 061
     Dates: start: 20050115, end: 20060203
  10. FILGRASTIM [Concomitant]
     Indication: DRUG USE FOR UNKNOWN INDICATION
     Route: 058
     Dates: start: 20050926, end: 20060203
  11. DIPHENHYDRAMINE HYDROCHLORIDE [Concomitant]
     Indication: DRUG USE FOR UNKNOWN INDICATION
     Route: 048
     Dates: start: 20051014, end: 20060203
  12. LOTRISONE [Concomitant]
     Indication: DRUG USE FOR UNKNOWN INDICATION
     Route: 061
     Dates: start: 20051014, end: 20060203
  13. TENOFOVIR [Concomitant]
     Indication: HIV INFECTION

REACTIONS (1)
  - DEATH [None]
